FAERS Safety Report 5095171-0 (Version None)
Quarter: 2006Q3

REPORT INFORMATION
  Report Type: 
  Country: None (occurrence: None)
  Receive Date: 20060731
  Receipt Date: 20060415
  Transmission Date: 20061208
  Serious: No
  Sender: FDA-Public Use
  Company Number: 2006PV012133

PATIENT
  Age: 61 Year
  Sex: Female
  Weight: 103.8737 kg

DRUGS (8)
  1. BYETTA [Suspect]
     Indication: DIABETES MELLITUS NON-INSULIN-DEPENDENT
     Dosage: SEE IMAGE
     Route: 058
     Dates: start: 20060413, end: 20060512
  2. BYETTA [Suspect]
     Indication: DIABETES MELLITUS NON-INSULIN-DEPENDENT
     Dosage: SEE IMAGE
     Route: 058
     Dates: start: 20060413, end: 20060512
  3. BYETTA [Suspect]
     Indication: DIABETES MELLITUS NON-INSULIN-DEPENDENT
     Dosage: SEE IMAGE
     Route: 058
     Dates: start: 20060413
  4. BYETTA [Suspect]
     Indication: DIABETES MELLITUS NON-INSULIN-DEPENDENT
     Dosage: SEE IMAGE
     Route: 058
     Dates: start: 20060513
  5. BYETTA [Suspect]
  6. GLUCOPHAGE [Concomitant]
  7. NEXIUM [Concomitant]
  8. GLIPIZIDE [Concomitant]

REACTIONS (7)
  - CHANGE OF BOWEL HABIT [None]
  - DRUG INEFFECTIVE FOR UNAPPROVED INDICATION [None]
  - INJECTION SITE RASH [None]
  - NAUSEA [None]
  - PAIN OF SKIN [None]
  - VOMITING [None]
  - WEIGHT DECREASED [None]
